FAERS Safety Report 9071452 (Version 1)
Quarter: 2013Q1

REPORT INFORMATION
  Report Type: Spontaneous
  Country: NL (occurrence: NL)
  Receive Date: 20130129
  Receipt Date: 20130129
  Transmission Date: 20140127
  Serious: Yes (Hospitalization)
  Sender: FDA-Public Use
  Company Number: NL-BAXTER-2013BAX002994

PATIENT
  Age: 60 None
  Sex: Female
  Weight: 60 kg

DRUGS (5)
  1. CYCLOPHOSPHAMID [Suspect]
     Indication: BREAST CANCER FEMALE
     Route: 042
     Dates: start: 20130108, end: 20130114
  2. DOXORUBICINE [Suspect]
     Indication: BREAST CANCER FEMALE
     Route: 042
     Dates: start: 20130108, end: 20130114
  3. DOCETAXEL [Suspect]
     Indication: BREAST CANCER FEMALE
     Route: 042
     Dates: start: 20130108, end: 20130114
  4. HYDROCHLOORTHIAZIDE [Concomitant]
     Indication: PRODUCT USED FOR UNKNOWN INDICATION
     Route: 048
  5. METOPROLOL [Concomitant]
     Indication: PRODUCT USED FOR UNKNOWN INDICATION
     Route: 048

REACTIONS (1)
  - Ischaemic cerebral infarction [Recovered/Resolved with Sequelae]
